FAERS Safety Report 6398704-7 (Version None)
Quarter: 2009Q4

REPORT INFORMATION
  Report Type: 
  Country: None (occurrence: None)
  Receive Date: 20091013
  Receipt Date: 20091001
  Transmission Date: 20100525
  Serious: Yes (Life-Threatening, Hospitalization, Other)
  Sender: FDA-Public Use
  Company Number: AT-ELI_LILLY_AND_COMPANY-AT200910000110

PATIENT
  Age: 24 Year
  Sex: Female

DRUGS (3)
  1. OLANZAPINE [Suspect]
     Indication: SCHIZOPHRENIA
     Dosage: 10 MG, 2/D
     Dates: end: 20090101
  2. TEMESTA [Concomitant]
     Dosage: 1 MG, DAILY (1/D)
  3. ORAL CONTRACEPTIVE NOS [Concomitant]
     Dosage: UNK, UNKNOWN

REACTIONS (1)
  - PULMONARY EMBOLISM [None]
